FAERS Safety Report 16017061 (Version 2)
Quarter: 2019Q3

REPORT INFORMATION
  Report Type: Report from Study
  Country: JP (occurrence: JP)
  Receive Date: 20190228
  Receipt Date: 20190918
  Transmission Date: 20191004
  Serious: Yes (Hospitalization)
  Sender: FDA-Public Use
  Company Number: JP-TEVA-2019-JP-001091J

PATIENT
  Age: 77 Year
  Sex: Male
  Weight: 66 kg

DRUGS (11)
  1. BAYASPIRIN [Suspect]
     Active Substance: ASPIRIN
     Indication: THROMBOSIS PROPHYLAXIS
     Dosage: 100 MILLIGRAM DAILY; AFTER BREAKFAST
     Route: 048
     Dates: start: 20190101
  2. BLOPRESS TABLETS 4 [Suspect]
     Active Substance: CANDESARTAN CILEXETIL
     Route: 048
     Dates: start: 20190107
  3. ZOLPIDEM TARTRATE OD [Suspect]
     Active Substance: ZOLPIDEM TARTRATE
     Indication: INSOMNIA
     Dosage: 2.5 MILLIGRAM DAILY; BEFORE BEDTIME (AS NEEDED)
     Route: 048
  4. GLIMEPIRIDE OD [Suspect]
     Active Substance: GLIMEPIRIDE
     Indication: TYPE 2 DIABETES MELLITUS
     Dosage: 1 MILLIGRAM DAILY; AFTER BREAKFAST
     Route: 048
  5. THYRADIN S [Suspect]
     Active Substance: LEVOTHYROXINE SODIUM
     Indication: HYPOTHYROIDISM
     Dosage: 75 MICROGRAM DAILY; BEFORE BEDTIME
     Route: 048
  6. TRIAZOLAM. [Suspect]
     Active Substance: TRIAZOLAM
     Indication: INSOMNIA
     Dosage: .125 MILLIGRAM DAILY; BEFORE BEDTIME (AS NEEDED)
     Route: 048
  7. BELSOMRA [Suspect]
     Active Substance: SUVOREXANT
     Indication: INSOMNIA
     Dosage: 15 MILLIGRAM DAILY; BEFORE BEDTIME (AS NEEDED)
     Route: 048
  8. BLOPRESS TABLETS 4 [Suspect]
     Active Substance: CANDESARTAN CILEXETIL
     Indication: PRODUCT USED FOR UNKNOWN INDICATION
     Dosage: 4 MILLIGRAM DAILY; AFTER BREAKFAST
     Route: 048
     Dates: start: 20181118, end: 20190101
  9. ACTOS [Suspect]
     Active Substance: PIOGLITAZONE HYDROCHLORIDE
     Indication: TYPE 2 DIABETES MELLITUS
     Dosage: 15 MILLIGRAM DAILY; AFTER BREAKFAST
     Route: 048
  10. FEBURIC [Suspect]
     Active Substance: FEBUXOSTAT
     Indication: HYPERURICAEMIA
     Dosage: 20 MILLIGRAM DAILY; AFTER BREAKFAST
     Route: 048
     Dates: start: 20181108
  11. HACHIMIJIO-GAN [Suspect]
     Active Substance: HERBS\ROOTS
     Dosage: 7.5 GRAM DAILY; 30 MINUTES BEFORE MEAL?HACHIMIJIOGAN
     Route: 048
     Dates: start: 20190408

REACTIONS (2)
  - Transient ischaemic attack [Recovered/Resolved]
  - Orthostatic hypotension [Recovered/Resolved]

NARRATIVE: CASE EVENT DATE: 20190101
